FAERS Safety Report 7897128-0 (Version None)
Quarter: 2011Q4

REPORT INFORMATION
  Report Type: 
  Country: None (occurrence: None)
  Receive Date: 20111107
  Receipt Date: 20111024
  Transmission Date: 20120403
  Serious: Yes (Hospitalization, Other)
  Sender: FDA-Public Use
  Company Number: ES-ELI_LILLY_AND_COMPANY-ES201110006018

PATIENT
  Age: 87 Year
  Sex: Female

DRUGS (11)
  1. OMEPRAZOLE [Concomitant]
     Indication: GASTROINTESTINAL ULCER
     Dosage: 20 MG, QD
     Route: 048
  2. NITRODERM [Concomitant]
     Dosage: 135 MG, BID
     Route: 048
  3. PROCORALAN [Concomitant]
  4. HIDROFEROL [Concomitant]
     Indication: OSTEOPOROSIS
     Dosage: 266 UG, QD
     Route: 048
     Dates: start: 20110801, end: 20110920
  5. AREMIS [Concomitant]
     Indication: DEPRESSION
     Dosage: 50 MG, QD
     Route: 048
  6. PHENYTOIN SODIUM [Concomitant]
     Indication: EPILEPSY
     Dosage: 100 MG, QD
     Route: 048
  7. NITRODERM [Concomitant]
     Indication: ANGINA PECTORIS
     Dosage: 5 MG, QD
     Route: 062
     Dates: start: 20110920
  8. LORAZEPAM [Concomitant]
     Indication: ANXIETY
     Dosage: 1 MG, QD
     Route: 048
  9. FORTEO [Suspect]
     Indication: OSTEOPOROSIS
     Dosage: 20 UG, QD
     Route: 058
     Dates: start: 20110801, end: 20110920
  10. ASPIRIN [Concomitant]
     Indication: ISCHAEMIC CARDIOMYOPATHY
     Dosage: 100 MG, QD
     Route: 048
  11. TOBRADEX [Concomitant]
     Indication: EYE INFECTION
     Route: 047

REACTIONS (6)
  - GENERAL PHYSICAL HEALTH DETERIORATION [None]
  - HYPERCALCAEMIA [None]
  - VITAMIN B12 DEFICIENCY [None]
  - ASTHENIA [None]
  - TREMOR [None]
  - GAIT DISTURBANCE [None]
